FAERS Safety Report 5851832-4 (Version None)
Quarter: 2008Q3

REPORT INFORMATION
  Report Type: 
  Country: None (occurrence: None)
  Receive Date: 20080820
  Receipt Date: 20080812
  Transmission Date: 20090109
  Serious: Yes (Hospitalization)
  Sender: FDA-Public Use
  Company Number: US-GILEAD-2008-0017785

PATIENT
  Age: 43 Year
  Sex: Male

DRUGS (14)
  1. TRUVADA [Suspect]
     Indication: HIV INFECTION
     Dates: start: 20050301
  2. VIREAD [Suspect]
     Indication: HIV INFECTION
     Route: 048
     Dates: start: 20070729
  3. PREZISTA [Concomitant]
     Indication: HIV INFECTION
     Dates: start: 20070729, end: 20070808
  4. KALETRA [Concomitant]
     Indication: HIV INFECTION
     Dates: start: 20050301
  5. COMBIVIR [Concomitant]
     Indication: HIV INFECTION
     Route: 048
     Dates: start: 20070729
  6. RITONAVIR [Concomitant]
     Indication: HIV INFECTION
     Route: 048
     Dates: start: 20070729
  7. ENFUVIRTIDE [Concomitant]
     Indication: HIV INFECTION
     Dates: start: 20070729
  8. MK-0518 [Concomitant]
     Route: 048
     Dates: start: 20070729
  9. AZITHROMYCIN [Concomitant]
     Indication: HIV INFECTION
     Dates: start: 20030101
  10. DAPSONE [Concomitant]
     Indication: HIV INFECTION
     Dates: start: 20060101
  11. FERROUS SULFATE TAB [Concomitant]
     Indication: HIV INFECTION
     Dates: start: 20070701
  12. DIFLUCAN [Concomitant]
     Indication: HIV INFECTION
     Dates: start: 20030101
  13. NAPROSYN [Concomitant]
     Indication: HIV INFECTION
     Dates: start: 20070725
  14. LANTUS [Concomitant]
     Indication: HIV INFECTION
     Dates: start: 20060101

REACTIONS (13)
  - ADRENAL INSUFFICIENCY [None]
  - ALANINE AMINOTRANSFERASE INCREASED [None]
  - ASPARTATE AMINOTRANSFERASE INCREASED [None]
  - BLOOD ALKALINE PHOSPHATASE INCREASED [None]
  - DEHYDRATION [None]
  - DIARRHOEA [None]
  - HEADACHE [None]
  - HYPOTENSION [None]
  - LIVER FUNCTION TEST ABNORMAL [None]
  - NAUSEA [None]
  - NO THERAPEUTIC RESPONSE [None]
  - RENAL FAILURE ACUTE [None]
  - SEPSIS [None]
